FAERS Safety Report 8798358 (Version 1)
Quarter: 2012Q4

REPORT INFORMATION
  Report Type: Spontaneous
  Country: US (occurrence: None)
  Receive Date: 20120913
  Receipt Date: 20120913
  Transmission Date: 20130627
  Serious: Yes (Other)
  Sender: FDA-Public Use
  Company Number: US-BANPHARM-20120107

PATIENT
  Age: 83 Year
  Sex: Male
  Weight: 68.93 kg

DRUGS (6)
  1. ALEVE LIQUID GELS 220 MG [Suspect]
     Indication: BACKACHE
     Route: 048
  2. ADVIL - ACTIVE SUBSTANCE(S) [Concomitant]
  3. IBUPROFEN [Concomitant]
  4. GLIMEPIRIDE - ACTIVE SUBSTANCE(S) [Concomitant]
  5. VITAMINS - ACTIVE SUBSTANCE(S) [Concomitant]
  6. UNISOM - ACTIVE SUBSTANCE(S) [Concomitant]

REACTIONS (1)
  - Blood urine present [None]
